FAERS Safety Report 10239115 (Version 2)
Quarter: 2014Q2

REPORT INFORMATION
  Report Type: Spontaneous
  Country: FR (occurrence: FR)
  Receive Date: 20140616
  Receipt Date: 20140623
  Transmission Date: 20141212
  Serious: Yes (Disabling, Other)
  Sender: FDA-Public Use
  Company Number: FR-JNJFOC-20140607844

PATIENT
  Age: 43 Year
  Sex: Male

DRUGS (2)
  1. XARELTO [Suspect]
     Indication: EMBOLISM VENOUS
     Route: 048
     Dates: start: 2012
  2. XARELTO [Suspect]
     Indication: PULMONARY EMBOLISM
     Route: 048
     Dates: start: 2012

REACTIONS (6)
  - Cerebral artery thrombosis [Unknown]
  - Basal ganglia infarction [Unknown]
  - Ischaemic stroke [Unknown]
  - Intracardiac thrombus [Unknown]
  - Carotid artery thrombosis [Unknown]
  - Treatment noncompliance [Unknown]
